FAERS Safety Report 6330583-6 (Version None)
Quarter: 2009Q3

REPORT INFORMATION
  Report Type: 
  Country: None (occurrence: None)
  Receive Date: 20090827
  Receipt Date: 20090819
  Transmission Date: 20100115
  Serious: Yes (Other)
  Sender: FDA-Public Use
  Company Number: GB-BRISTOL-MYERS SQUIBB COMPANY-14749832

PATIENT
  Age: 3 Decade
  Sex: Female

DRUGS (4)
  1. REYATAZ [Suspect]
     Indication: HIV INFECTION
  2. SUSTIVA [Suspect]
     Indication: HIV INFECTION
  3. KIVEXA [Suspect]
     Indication: HIV INFECTION
  4. FLUTICASONE [Suspect]
     Indication: LUNG INFECTION
     Route: 055

REACTIONS (3)
  - CUSHING'S SYNDROME [None]
  - DRUG INTOLERANCE [None]
  - LUNG INFECTION [None]
